FAERS Safety Report 4647534-2 (Version None)
Quarter: 2005Q2

REPORT INFORMATION
  Report Type: 
  Country: None (occurrence: None)
  Receive Date: 20050428
  Receipt Date: 20050420
  Transmission Date: 20051028
  Serious: Yes (Hospitalization)
  Sender: FDA-Public Use
  Company Number: IT-ROCHE-402543

PATIENT
  Age: 65 Year
  Sex: Male

DRUGS (1)
  1. ROCEPHIN [Suspect]
     Indication: PROPHYLAXIS
     Route: 030
     Dates: start: 20050418, end: 20050418

REACTIONS (4)
  - DYSPNOEA [None]
  - HYPOTENSION [None]
  - MUSCLE RIGIDITY [None]
  - URTICARIA GENERALISED [None]
